FAERS Safety Report 9394665 (Version 3)
Quarter: 2013Q3

REPORT INFORMATION
  Report Type: Spontaneous
  Country: DE (occurrence: CN)
  Receive Date: 20130711
  Receipt Date: 20130812
  Transmission Date: 20140515
  Serious: Yes (Hospitalization, Other)
  Sender: FDA-Public Use
  Company Number: CN-RANBAXY-2013US-71146

PATIENT
  Age: 62 Year
  Sex: Male

DRUGS (5)
  1. PANTOPRAZOLE [Suspect]
     Indication: DUODENAL ULCER
     Dosage: 40 MG, DAILY
     Route: 048
  2. PANTOPRAZOLE [Suspect]
     Indication: GASTRITIS
  3. PANTOPRAZOLE [Suspect]
     Indication: GASTROOESOPHAGEAL REFLUX DISEASE
  4. BISMUTH PECTIN [Concomitant]
     Indication: PRODUCT USED FOR UNKNOWN INDICATION
     Route: 048
  5. FURAZOLIDONE [Concomitant]
     Indication: PRODUCT USED FOR UNKNOWN INDICATION
     Route: 065

REACTIONS (4)
  - Dermatitis allergic [Recovered/Resolved]
  - Skin exfoliation [Recovering/Resolving]
  - Erythema [Recovering/Resolving]
  - Pruritus [Recovering/Resolving]
